FAERS Safety Report 4943545-8 (Version None)
Quarter: 2006Q1

REPORT INFORMATION
  Report Type: 
  Country: None (occurrence: None)
  Receive Date: 20060309
  Receipt Date: 20060303
  Transmission Date: 20060701
  Serious: Yes (Hospitalization)
  Sender: FDA-Public Use
  Company Number: US-2005-006269

PATIENT
  Age: 67 Year
  Sex: Female
  Weight: 72 kg

DRUGS (11)
  1. BETASERON [Suspect]
     Indication: MULTIPLE SCLEROSIS
     Dosage: 8 MIU, EVERY 2D, SUBCUTANEOUS
     Route: 058
     Dates: start: 20011017, end: 20050326
  2. BETASERON [Suspect]
     Indication: MULTIPLE SCLEROSIS
     Dosage: 8 MIU, EVERY 2D, SUBCUTANEOUS
     Route: 058
     Dates: start: 20050616
  3. LIPITOR [Concomitant]
  4. NORVASC /DEN/ (AMLODIPINE BESILATE) [Concomitant]
  5. HYDROCHLOROTHIAZIDE [Concomitant]
  6. VICODIN (HYDROCODINE BITARTRATE) [Concomitant]
  7. PROPRANOLOL [Concomitant]
  8. DITROPAN XL [Concomitant]
  9. METFORMIN HCL [Concomitant]
  10. INSULIN (INSULIN) [Concomitant]
  11. PROTONIX [Concomitant]

REACTIONS (17)
  - ABNORMAL BEHAVIOUR [None]
  - BACK PAIN [None]
  - BLOOD PRESSURE SYSTOLIC INCREASED [None]
  - CEREBRAL ATROPHY [None]
  - HEART RATE INCREASED [None]
  - HYDRONEPHROSIS [None]
  - MEMORY IMPAIRMENT [None]
  - MENTAL STATUS CHANGES [None]
  - NEPHROLITHIASIS [None]
  - PAIN [None]
  - PARAPLEGIA [None]
  - PYELONEPHRITIS [None]
  - STUPOR [None]
  - TENDERNESS [None]
  - URETERIC OBSTRUCTION [None]
  - URINARY TRACT INFECTION [None]
  - URINE KETONE BODY PRESENT [None]
